FAERS Safety Report 16025695 (Version 1)
Quarter: 2019Q1

REPORT INFORMATION
  Report Type: Spontaneous
  Country: ES (occurrence: ES)
  Receive Date: 20190302
  Receipt Date: 20190302
  Transmission Date: 20190418
  Serious: Yes (Hospitalization, Other)
  Sender: FDA-Public Use
  Company Number: ES-AUROBINDO-AUR-APL-2019-009427

PATIENT

DRUGS (1)
  1. IBANDRONIC ACID FILM COATED TABLETS [Suspect]
     Active Substance: IBANDRONIC ACID
     Indication: OSTEOPOROSIS
     Dosage: UNK
     Route: 048

REACTIONS (5)
  - Femur fracture [Recovering/Resolving]
  - Motor dysfunction [Recovering/Resolving]
  - Osteoarthritis [Recovering/Resolving]
  - Limb deformity [Unknown]
  - Pain in extremity [Recovering/Resolving]
